FAERS Safety Report 8927946 (Version 1)
Quarter: 2012Q4

REPORT INFORMATION
  Report Type: Spontaneous
  Country: US (occurrence: None)
  Receive Date: 20121126
  Receipt Date: 20121126
  Transmission Date: 20130627
  Serious: Yes (Disabling)
  Sender: FDA-Public Use
  Company Number: None

PATIENT
  Age: 76 Year
  Sex: Female
  Weight: 33.11 kg

DRUGS (1)
  1. ETHAMBUTOL [Suspect]
     Dosage: less than 3 months
1 1/2 tablets-600 1 x daily po
     Route: 048

REACTIONS (2)
  - Weight decreased [None]
  - Blindness [None]
